FAERS Safety Report 17444978 (Version 8)
Quarter: 2020Q3

REPORT INFORMATION
  Report Type: Spontaneous
  Country: CA (occurrence: CA)
  Receive Date: 20200221
  Receipt Date: 20200731
  Transmission Date: 20201102
  Serious: Yes (Other)
  Sender: FDA-Public Use
  Company Number: CA-PFIZER INC-2018324777

PATIENT
  Age: 65 Year
  Sex: Female

DRUGS (23)
  1. IMODIUM [Concomitant]
     Active Substance: LOPERAMIDE HYDROCHLORIDE
     Dosage: UNK
  2. PROCHLORPERAZINE. [Concomitant]
     Active Substance: PROCHLORPERAZINE
     Indication: NAUSEA
     Dosage: 10 MG, AS NEEDED (EVERY 6 HOURS)
     Route: 048
  3. ASA [Concomitant]
     Active Substance: ASPIRIN
     Dosage: UNK
  4. SILENOR [Concomitant]
     Active Substance: DOXEPIN HYDROCHLORIDE
     Dosage: UNK
  5. IBRANCE [Suspect]
     Active Substance: PALBOCICLIB
     Dosage: 100 MG, CYCLIC (21 DAYS ON, THEN 7 DAYS OFF)
     Dates: start: 20191118, end: 20200211
  6. SYNTHROID [Concomitant]
     Active Substance: LEVOTHYROXINE SODIUM
     Dosage: UNK
  7. ZOLPIDEM [Concomitant]
     Active Substance: ZOLPIDEM TARTRATE
     Dosage: UNK
  8. CALCIUM [Concomitant]
     Active Substance: CALCIUM
     Dosage: 500 IU, 2X/DAY
     Route: 048
  9. AVAMYS [Concomitant]
     Active Substance: FLUTICASONE FUROATE
     Dosage: UNK
  10. IBRANCE [Suspect]
     Active Substance: PALBOCICLIB
     Indication: BREAST CANCER METASTATIC
     Dosage: 125 MG, CYCLIC (21/28 DAYS)
     Dates: start: 20180914, end: 2018
  11. LETROZOLE. [Concomitant]
     Active Substance: LETROZOLE
     Indication: BREAST CANCER METASTATIC
     Dosage: 2.5 MG, 1X/DAY
     Route: 048
  12. VITAMIN D [COLECALCIFEROL] [Concomitant]
     Active Substance: CHOLECALCIFEROL
     Dosage: 400 IU, 2X/DAY
     Route: 048
  13. LOPERAMIDE [Concomitant]
     Active Substance: LOPERAMIDE
     Indication: DIARRHOEA
     Dosage: 4 MG, AS NEEDED
     Route: 048
  14. MAJIC MOUTHWASH [Concomitant]
     Dosage: 15 ML, AS NEEDED
     Route: 048
  15. IBRANCE [Suspect]
     Active Substance: PALBOCICLIB
     Dosage: 100 MG, CYCLIC (21 DAYS ON, THEN 7 DAYS OFF)
     Dates: start: 2019, end: 2019
  16. XGEVA [Concomitant]
     Active Substance: DENOSUMAB
     Dosage: UNK
  17. ACETAMINOPHEN. [Concomitant]
     Active Substance: ACETAMINOPHEN
     Indication: ARTHRALGIA
  18. STEMETIL [Concomitant]
     Active Substance: PROCHLORPERAZINE
     Dosage: UNK
  19. ACETAMINOPHEN. [Concomitant]
     Active Substance: ACETAMINOPHEN
     Indication: MYALGIA
     Dosage: UNK, AS NEEDED, (500 TO 1000MG AS NEEDED EVERY 4 HOURS)
     Route: 048
  20. LOPERAMIDE [Concomitant]
     Active Substance: LOPERAMIDE
     Dosage: 2 MG, AS NEEDED
     Route: 048
  21. MAJIC MOUTHWASH [Concomitant]
     Indication: MUCOSAL INFLAMMATION
     Dosage: 15 ML, 4X/DAY
     Route: 048
  22. IBRANCE [Suspect]
     Active Substance: PALBOCICLIB
     Dosage: 100 MG, CYCLIC (21 DAYS ON, THEN 7 DAYS OFF)
     Dates: end: 2019
  23. DEXILANT [Concomitant]
     Active Substance: DEXLANSOPRAZOLE
     Dosage: UNK

REACTIONS (10)
  - Vomiting [Unknown]
  - Abdominal pain upper [Unknown]
  - Diarrhoea [Unknown]
  - Diverticulitis [Unknown]
  - Abdominal distension [Unknown]
  - Fatigue [Unknown]
  - Neutropenia [Not Recovered/Not Resolved]
  - COVID-19 [Unknown]
  - White blood cell count decreased [Not Recovered/Not Resolved]
  - Nasopharyngitis [Not Recovered/Not Resolved]

NARRATIVE: CASE EVENT DATE: 2018
